FAERS Safety Report 6850464-9 (Version None)
Quarter: 2010Q3

REPORT INFORMATION
  Report Type: 
  Country: None (occurrence: None)
  Receive Date: 20100716
  Receipt Date: 20071129
  Transmission Date: 20110219
  Serious: No
  Sender: FDA-Public Use
  Company Number: US-PFIZER INC-2007086934

PATIENT
  Sex: Male
  Weight: 77.1 kg

DRUGS (2)
  1. CHANTIX [Suspect]
     Indication: SMOKING CESSATION THERAPY
     Route: 048
     Dates: start: 20070927
  2. CELEXA [Concomitant]
     Indication: ANXIETY
     Route: 048

REACTIONS (2)
  - ABNORMAL DREAMS [None]
  - PSYCHOMOTOR HYPERACTIVITY [None]
